FAERS Safety Report 6477586-9 (Version None)
Quarter: 2009Q4

REPORT INFORMATION
  Report Type: 
  Country: None (occurrence: None)
  Receive Date: 20091207
  Receipt Date: 20091130
  Transmission Date: 20100525
  Serious: Yes (Disabling)
  Sender: FDA-Public Use
  Company Number: JP-ASTRAZENECA-2009SE26580

PATIENT
  Age: 60 Year
  Sex: Male
  Weight: 53 kg

DRUGS (8)
  1. CRESTOR [Suspect]
     Indication: HYPERLIPIDAEMIA
     Route: 048
     Dates: start: 20090428, end: 20090605
  2. CRESTOR [Suspect]
     Route: 048
     Dates: start: 20090824, end: 20091005
  3. TANATRIL [Concomitant]
     Indication: HYPERTENSION
     Route: 048
     Dates: start: 20090414, end: 20091019
  4. OPALMON [Concomitant]
     Indication: ARTERIOSCLEROSIS OBLITERANS
     Route: 048
     Dates: start: 20090414
  5. ASPIRIN [Concomitant]
     Indication: ARTERIOSCLEROSIS OBLITERANS
     Route: 048
     Dates: start: 20090414
  6. CIMETIDINE HCL [Concomitant]
     Indication: GASTRITIS
     Route: 048
     Dates: start: 20090414
  7. AMARYL [Concomitant]
     Indication: DIABETES MELLITUS
     Dosage: 2MG X 1 AND 1MG X 1 PER DAY.
     Route: 048
     Dates: start: 20090414
  8. LASIX [Concomitant]
     Indication: OEDEMA DUE TO RENAL DISEASE
     Route: 048
     Dates: start: 20090414

REACTIONS (7)
  - AMYOTROPHIC LATERAL SCLEROSIS [None]
  - BALANCE DISORDER [None]
  - GAIT DISTURBANCE [None]
  - HYPOAESTHESIA [None]
  - MUSCLE ATROPHY [None]
  - MUSCULAR DYSTROPHY [None]
  - MUSCULAR WEAKNESS [None]
